FAERS Safety Report 14572180 (Version 2)
Quarter: 2018Q3

REPORT INFORMATION
  Report Type: Spontaneous
  Country: US (occurrence: US)
  Receive Date: 20180226
  Receipt Date: 20180727
  Transmission Date: 20181010
  Serious: Yes (Other)
  Sender: FDA-Public Use
  Company Number: US-BAYER-2018-037130

PATIENT
  Age: 20 Year
  Sex: Female
  Weight: 78.1 kg

DRUGS (4)
  1. RANITIDINE. [Concomitant]
     Active Substance: RANITIDINE
  2. MIRENA [Suspect]
     Active Substance: LEVONORGESTREL
     Indication: CONTRACEPTION
     Dosage: 20 MCG/24HR, CONT
     Route: 015
     Dates: start: 20171203, end: 20180214
  3. SYNTHROID [Concomitant]
     Active Substance: LEVOTHYROXINE SODIUM
  4. FERROUS SULFATE. [Concomitant]
     Active Substance: FERROUS SULFATE

REACTIONS (5)
  - Coital bleeding [None]
  - Genital haemorrhage [None]
  - Device expulsion [None]
  - Abdominal pain lower [None]
  - Dyspareunia [None]

NARRATIVE: CASE EVENT DATE: 20180214
